FAERS Safety Report 9669823 (Version 1)
Quarter: 2013Q4

REPORT INFORMATION
  Report Type: Spontaneous
  Country: GB (occurrence: GB)
  Receive Date: 20131105
  Receipt Date: 20131105
  Transmission Date: 20140711
  Serious: Yes (Hospitalization)
  Sender: FDA-Public Use
  Company Number: GB-PFIZER INC-2013314998

PATIENT
  Sex: Female
  Weight: 2.5 kg

DRUGS (6)
  1. NICOTINE [Suspect]
     Dosage: UNK
     Route: 064
  2. HEROIN [Suspect]
     Dosage: UNK
     Route: 064
  3. SUBUTEX [Suspect]
     Dosage: 8 MG, UNK
     Route: 064
     Dates: start: 20021022, end: 2002
  4. SUBUTEX [Suspect]
     Dosage: 8 MG, UNK
     Route: 064
     Dates: start: 20021107
  5. SUBUTEX [Suspect]
     Dosage: 0.4 MG, WEEKLY
     Route: 064
     Dates: end: 20030626
  6. SUBUTEX [Suspect]
     Dosage: 2 MG, 4X/DAY
     Route: 064
     Dates: start: 20030627, end: 20030719

REACTIONS (2)
  - Maternal exposure during pregnancy [Recovered/Resolved]
  - Drug withdrawal syndrome neonatal [Unknown]
